FAERS Safety Report 8262045-3 (Version None)
Quarter: 2012Q2

REPORT INFORMATION
  Report Type: 
  Country: None (occurrence: None)
  Receive Date: 20120405
  Receipt Date: 20120328
  Transmission Date: 20120825
  Serious: Yes (Hospitalization, Congenital Anomaly, Other)
  Sender: FDA-Public Use
  Company Number: US-FRI-1000028126

PATIENT
  Sex: Female
  Weight: 3.57 kg

DRUGS (1)
  1. LEXAPRO [Suspect]
     Route: 064
     Dates: end: 20090714

REACTIONS (8)
  - JAUNDICE NEONATAL [None]
  - HYPERTENSION [None]
  - ATRIAL SEPTAL DEFECT [None]
  - URINARY TRACT INFECTION NEONATAL [None]
  - HYDRONEPHROSIS [None]
  - CARDIOMEGALY [None]
  - VENTRICULAR SEPTAL DEFECT [None]
  - NODAL RHYTHM [None]
